FAERS Safety Report 18895973 (Version 2)
Quarter: 2021Q1

REPORT INFORMATION
  Report Type: Spontaneous
  Country: GB (occurrence: GB)
  Receive Date: 20210216
  Receipt Date: 20210220
  Transmission Date: 20210420
  Serious: Yes (Life-Threatening, Hospitalization, Other)
  Sender: FDA-Public Use
  Company Number: GB-AUROBINDO-AUR-APL-2021-006284

PATIENT
  Sex: Female

DRUGS (2)
  1. VENLAFAXINE [Suspect]
     Active Substance: VENLAFAXINE HYDROCHLORIDE
     Dosage: 75 MILLIGRAM
     Route: 063
  2. VENLAFAXINE [Suspect]
     Active Substance: VENLAFAXINE HYDROCHLORIDE
     Indication: PRODUCT USED FOR UNKNOWN INDICATION
     Dosage: 75 MILLIGRAM
     Route: 064

REACTIONS (3)
  - Seizure [Recovered/Resolved]
  - Hypoxic-ischaemic encephalopathy [Not Recovered/Not Resolved]
  - Selective eating disorder [Recovered/Resolved]

NARRATIVE: CASE EVENT DATE: 20210124
